FAERS Safety Report 17868015 (Version 1)
Quarter: 2020Q2

REPORT INFORMATION
  Report Type: Spontaneous
  Country: PL (occurrence: PL)
  Receive Date: 20200605
  Receipt Date: 20200605
  Transmission Date: 20200714
  Serious: Yes (Other)
  Sender: FDA-Public Use
  Company Number: PL-US-PROVELL PHARMACEUTICALS LLC-9166617

PATIENT
  Age: 27 Year
  Sex: Female

DRUGS (1)
  1. EUTHYROX [Suspect]
     Active Substance: LEVOTHYROXINE SODIUM
     Indication: HYPOTHYROIDISM
     Dosage: DOSAGE ALTERNATELY 250 AND 300 (UNSPECIFIED UNIT)

REACTIONS (2)
  - Blood thyroid stimulating hormone decreased [Unknown]
  - Gallbladder disorder [Unknown]
